FAERS Safety Report 5117959-X (Version None)
Quarter: 2006Q3

REPORT INFORMATION
  Report Type: 
  Country: None (occurrence: None)
  Receive Date: 20060925
  Receipt Date: 20060912
  Transmission Date: 20061208
  Serious: Yes (Other)
  Sender: FDA-Public Use
  Company Number: 6025742F

PATIENT
  Age: 69 Year
  Sex: Male

DRUGS (1)
  1. NIASPAN [Suspect]
     Indication: HYPERTRIGLYCERIDAEMIA
     Dosage: 500 MG QD PO
     Route: 048
     Dates: start: 20060802, end: 20060804

REACTIONS (2)
  - CONFUSIONAL STATE [None]
  - HALLUCINATION [None]
